FAERS Safety Report 12894749 (Version 2)
Quarter: 2016Q4

REPORT INFORMATION
  Report Type: Report from Study
  Country: US (occurrence: US)
  Receive Date: 20161028
  Receipt Date: 20161104
  Transmission Date: 20170207
  Serious: Yes (Hospitalization, Other)
  Sender: FDA-Public Use
  Company Number: US-SAOL THERAPEUTICS-2016SAO00960

PATIENT
  Age: 49 Year
  Sex: Male
  Weight: 88.44 kg

DRUGS (8)
  1. HYDROMORPHONE [Suspect]
     Active Substance: HYDROMORPHONE
     Dosage: 2.2009 MG, \DAY
     Route: 037
     Dates: start: 20160908
  2. CLONIDINE. [Suspect]
     Active Substance: CLONIDINE
     Dosage: 183.41 ?G, \DAY
     Route: 037
     Dates: start: 20160908
  3. COMPOUNDED BACLOFEN [Suspect]
     Active Substance: BACLOFEN
     Dosage: 293.45 ?G, \DAY
     Route: 037
     Dates: start: 20160908
  4. BUPIVACAINE. [Suspect]
     Active Substance: BUPIVACAINE
     Dosage: 22.009 MG, \DAY
     Route: 037
     Dates: start: 20160908
  5. CLONIDINE. [Suspect]
     Active Substance: CLONIDINE
     Dosage: 201.35 ?G, \DAY
     Route: 037
     Dates: start: 20160908
  6. HYDROMORPHONE [Suspect]
     Active Substance: HYDROMORPHONE
     Dosage: 2.416 MG, \DAY
     Route: 037
     Dates: start: 20160908
  7. BUPIVACAINE. [Suspect]
     Active Substance: BUPIVACAINE
     Dosage: 24.162 UNK, UNK
     Route: 037
     Dates: start: 20160908
  8. COMPOUNDED BACLOFEN [Suspect]
     Active Substance: BACLOFEN
     Dosage: 322.16 ?G, \DAY
     Route: 037
     Dates: start: 20160908

REACTIONS (11)
  - Toxicity to various agents [Unknown]
  - Muscle spasticity [Unknown]
  - Depressed level of consciousness [Unknown]
  - Pulmonary oedema [Unknown]
  - Somnolence [Unknown]
  - Loss of consciousness [Unknown]
  - Incorrect route of drug administration [Unknown]
  - Respiratory depression [Unknown]
  - Pain [Unknown]
  - Metabolic encephalopathy [Unknown]
  - Nausea [Unknown]

NARRATIVE: CASE EVENT DATE: 20161020
